FAERS Safety Report 14720775 (Version 3)
Quarter: 2018Q4

REPORT INFORMATION
  Report Type: Spontaneous
  Country: US (occurrence: US)
  Receive Date: 20180405
  Receipt Date: 20181019
  Transmission Date: 20190204
  Serious: Yes (Hospitalization, Other)
  Sender: FDA-Public Use
  Company Number: US-ASTRAZENECA-2018SE41415

PATIENT
  Age: 58 Year
  Sex: Male
  Weight: 106.6 kg

DRUGS (22)
  1. BABY ASPIRIN [Concomitant]
     Active Substance: ASPIRIN
     Indication: ANTICOAGULANT THERAPY
     Dates: start: 2007
  2. NEXIUM [Suspect]
     Active Substance: ESOMEPRAZOLE MAGNESIUM
     Indication: GASTROOESOPHAGEAL REFLUX DISEASE
     Route: 048
     Dates: start: 1990
  3. NEXIUM [Suspect]
     Active Substance: ESOMEPRAZOLE MAGNESIUM
     Indication: GASTROOESOPHAGEAL REFLUX DISEASE
     Route: 048
     Dates: start: 20120308
  4. TAGAMET HB [Concomitant]
     Active Substance: CIMETIDINE
  5. XANAX [Concomitant]
     Active Substance: ALPRAZOLAM
  6. ZANTAC 300 [Concomitant]
  7. RANITIDINE. [Suspect]
     Active Substance: RANITIDINE
     Indication: GASTROOESOPHAGEAL REFLUX DISEASE
     Route: 048
     Dates: start: 20120308
  8. HEPARIN [Concomitant]
     Active Substance: HEPARIN SODIUM
     Dosage: 5000 UNITS/ML
  9. NOVOLOG [Concomitant]
     Active Substance: INSULIN ASPART
  10. LIPITOR [Concomitant]
     Active Substance: ATORVASTATIN CALCIUM
     Dosage: 10 MG
  11. NEXIUM [Suspect]
     Active Substance: ESOMEPRAZOLE MAGNESIUM
     Indication: GASTROOESOPHAGEAL REFLUX DISEASE
     Route: 048
     Dates: start: 1999
  12. RANITIDINE. [Suspect]
     Active Substance: RANITIDINE
     Indication: GASTROOESOPHAGEAL REFLUX DISEASE
     Route: 065
     Dates: start: 2007, end: 2008
  13. ZANTAC [Concomitant]
     Active Substance: RANITIDINE HYDROCHLORIDE
  14. NEXIUM [Suspect]
     Active Substance: ESOMEPRAZOLE MAGNESIUM
     Indication: GASTROOESOPHAGEAL REFLUX DISEASE
     Route: 048
     Dates: start: 201204, end: 201701
  15. PRILOSEC [Suspect]
     Active Substance: OMEPRAZOLE MAGNESIUM
     Indication: GASTROOESOPHAGEAL REFLUX DISEASE
     Route: 048
     Dates: start: 20111212
  16. PRILOSEC [Suspect]
     Active Substance: OMEPRAZOLE MAGNESIUM
     Indication: GASTROOESOPHAGEAL REFLUX DISEASE
     Route: 065
     Dates: start: 1996
  17. PRILOSEC [Suspect]
     Active Substance: OMEPRAZOLE MAGNESIUM
     Indication: GASTROOESOPHAGEAL REFLUX DISEASE
     Dosage: GENERIC
     Route: 065
     Dates: start: 2016, end: 2017
  18. PROTONIX [Suspect]
     Active Substance: PANTOPRAZOLE SODIUM
     Indication: GASTROOESOPHAGEAL REFLUX DISEASE
     Dosage: GENERIC
     Route: 065
     Dates: start: 20120314
  19. OXYCODONE HYDROCHLORIDE. [Concomitant]
     Active Substance: OXYCODONE HYDROCHLORIDE
     Route: 048
     Dates: start: 20120319
  20. PEPCID [Concomitant]
     Active Substance: FAMOTIDINE
  21. METFORMIN [Concomitant]
     Active Substance: METFORMIN HYDROCHLORIDE
  22. DIAZEPAM. [Concomitant]
     Active Substance: DIAZEPAM
     Route: 048
     Dates: start: 20120309

REACTIONS (5)
  - Acute kidney injury [Recovered/Resolved]
  - Chronic kidney disease [Unknown]
  - Renal failure [Not Recovered/Not Resolved]
  - Pancreatic failure [Not Recovered/Not Resolved]
  - Tubulointerstitial nephritis [Unknown]

NARRATIVE: CASE EVENT DATE: 2017
